FAERS Safety Report 8788950 (Version 2)
Quarter: 2012Q4

REPORT INFORMATION
  Report Type: 
  Country: US (occurrence: US)
  Receive Date: 20120917
  Receipt Date: 20121217
  Transmission Date: 20130627
  Serious: No
  Sender: FDA-Public Use
  Company Number: US-PFIZER INC-2012224467

PATIENT
  Age: 61 Year
  Sex: Male
  Weight: 69.39 kg

DRUGS (5)
  1. SUTENT [Suspect]
     Indication: RENAL CANCER METASTATIC
     Dosage: 50 mg, daily
  2. SUTENT [Suspect]
     Dosage: 37.5 mg, Daily
  3. SUTENT [Suspect]
     Dosage: 50 mg, daily
     Dates: end: 2012
  4. AMLODIPINE [Concomitant]
     Indication: BLOOD PRESSURE HIGH
     Dosage: 10 mg, daily
  5. LABETALOL [Concomitant]
     Indication: BLOOD PRESSURE HIGH
     Dosage: 400 mg, 2x/day
     Route: 048

REACTIONS (7)
  - Epistaxis [Unknown]
  - Gastrooesophageal reflux disease [Unknown]
  - Diarrhoea [Unknown]
  - Nausea [Unknown]
  - Insomnia [Unknown]
  - Asthenia [Unknown]
  - Fatigue [Unknown]
